FAERS Safety Report 21874902 (Version 1)
Quarter: 2023Q1

REPORT INFORMATION
  Report Type: Spontaneous
  Country: US (occurrence: US)
  Receive Date: 20230117
  Receipt Date: 20230117
  Transmission Date: 20230418
  Serious: Yes (Other)
  Sender: FDA-Public Use
  Company Number: US-SA-SAC20230112000757

PATIENT

DRUGS (1)
  1. LARONIDASE [Suspect]
     Active Substance: LARONIDASE
     Indication: Mucopolysaccharidosis I
     Dosage: 20.3 DF, QW
     Route: 042
     Dates: start: 20221129

REACTIONS (3)
  - Pericardial fibrosis [Unknown]
  - Corneal opacity [Unknown]
  - Heart valve incompetence [Unknown]
